FAERS Safety Report 25666182 (Version 1)
Quarter: 2025Q3

REPORT INFORMATION
  Report Type: Spontaneous
  Country: US (occurrence: None)
  Receive Date: 20250811
  Receipt Date: 20250811
  Transmission Date: 20251020
  Serious: Yes (Other)
  Sender: FDA-CTU
  Company Number: None

PATIENT
  Age: 66 Year
  Sex: Female
  Weight: 67.5 kg

DRUGS (3)
  1. AMOXICILLIN [Suspect]
     Active Substance: AMOXICILLIN
     Indication: Oral surgery
     Route: 048
     Dates: start: 20250807, end: 20250809
  2. AMOXICILLIN [Suspect]
     Active Substance: AMOXICILLIN
     Indication: Tooth extraction
  3. AMOXICILLIN [Concomitant]
     Active Substance: AMOXICILLIN
     Dates: start: 20250807, end: 20250809

REACTIONS (4)
  - Product label on wrong product [None]
  - Abdominal pain upper [None]
  - Insomnia [None]
  - Wrong product administered [None]

NARRATIVE: CASE EVENT DATE: 20250807
